FAERS Safety Report 5425049-1 (Version None)
Quarter: 2007Q3

REPORT INFORMATION
  Report Type: 
  Country: None (occurrence: None)
  Receive Date: 20070824
  Receipt Date: 20070822
  Transmission Date: 20080115
  Serious: Yes (Death, Hospitalization)
  Sender: FDA-Public Use
  Company Number: FR-BRISTOL-MYERS SQUIBB COMPANY-13886650

PATIENT
  Age: 34 Year
  Sex: Female

DRUGS (2)
  1. BICNU [Suspect]
     Route: 042
     Dates: start: 20061001, end: 20070307
  2. TEMODAL [Suspect]
     Dates: start: 20061001, end: 20070307

REACTIONS (12)
  - APLASIA [None]
  - BONE MARROW FAILURE [None]
  - COR PULMONALE ACUTE [None]
  - DRUG TOXICITY [None]
  - INFLAMMATION [None]
  - MULTI-ORGAN FAILURE [None]
  - MULTIPLE-DRUG RESISTANCE [None]
  - PNEUMONITIS [None]
  - PSEUDOMONAS INFECTION [None]
  - SEPTIC SHOCK [None]
  - SUPERINFECTION [None]
  - THROMBOCYTOPENIA [None]
